FAERS Safety Report 17210337 (Version 2)
Quarter: 2020Q1

REPORT INFORMATION
  Report Type: Spontaneous
  Country: RU (occurrence: RU)
  Receive Date: 20191227
  Receipt Date: 20200103
  Transmission Date: 20200409
  Serious: Yes (Hospitalization, Other)
  Sender: FDA-Public Use
  Company Number: RU-ASTRAZENECA-2019SF87832

PATIENT
  Age: 26 Year
  Sex: Female
  Weight: 48 kg

DRUGS (1)
  1. SYMBICORT [Suspect]
     Active Substance: BUDESONIDE\FORMOTEROL FUMARATE DIHYDRATE
     Indication: ASTHMA
     Dosage: 2 INHALATIONS BID PLUS ADDITIONAL INHALATIONS AS NEEDED
     Route: 055

REACTIONS (2)
  - Asthma [Recovering/Resolving]
  - Drug ineffective [Unknown]
